FAERS Safety Report 6793319-0 (Version None)
Quarter: 2010Q2

REPORT INFORMATION
  Report Type: 
  Country: None (occurrence: None)
  Receive Date: 20100624
  Receipt Date: 20100222
  Transmission Date: 20101027
  Serious: Yes (Other)
  Sender: FDA-Public Use
  Company Number: US-MYLANLABS-2009S1020319

PATIENT
  Age: 20 Year
  Sex: Male
  Weight: 66.23 kg

DRUGS (16)
  1. CLOZAPINE [Suspect]
     Indication: SCHIZOAFFECTIVE DISORDER
     Route: 048
     Dates: start: 20091102, end: 20091118
  2. CLOZAPINE [Suspect]
     Route: 048
     Dates: start: 20091119, end: 20091209
  3. CLOZAPINE [Suspect]
     Route: 048
     Dates: start: 20091101, end: 20091118
  4. CLOZAPINE [Suspect]
     Route: 048
     Dates: start: 20091119, end: 20091209
  5. RISPERIDONE [Concomitant]
  6. HALDOL [Concomitant]
  7. LEVOTHYROXINE SODIUM [Concomitant]
     Route: 048
     Dates: start: 20091026
  8. M.V.I. [Concomitant]
     Dosage: WITH MINERALS
     Route: 048
     Dates: start: 20091026
  9. RANITIDINE [Concomitant]
     Route: 048
     Dates: start: 20091015, end: 20091105
  10. AMOXICILLIN [Concomitant]
     Route: 048
     Dates: start: 20091105, end: 20091119
  11. OMEPRAZOLE [Concomitant]
     Route: 048
     Dates: start: 20091105, end: 20091119
  12. CLARITHROMYCIN [Concomitant]
     Route: 048
     Dates: start: 20091105, end: 20091119
  13. DIVALPROEX SODIUM [Concomitant]
     Route: 048
     Dates: start: 20090716
  14. HYDROXYZINE [Concomitant]
     Route: 048
     Dates: start: 20091102
  15. OMEPRAZOLE [Concomitant]
     Route: 048
     Dates: start: 20091120
  16. FLUVAX [Concomitant]
     Dates: start: 20091202

REACTIONS (1)
  - GRANULOCYTOPENIA [None]
